FAERS Safety Report 15668405 (Version 2)
Quarter: 2018Q4

REPORT INFORMATION
  Report Type: Spontaneous
  Country: IT (occurrence: IT)
  Receive Date: 20181129
  Receipt Date: 20181211
  Transmission Date: 20190205
  Serious: Yes (Other)
  Sender: FDA-Public Use
  Company Number: IT-B.I. PHARMACEUTICALS,INC./RIDGEFIELD-2018-BI-057020

PATIENT
  Age: 75 Year
  Sex: Male
  Weight: 68 kg

DRUGS (14)
  1. ACID ACETYLSALICYLIC [Suspect]
     Active Substance: ASPIRIN
     Indication: THROMBOSIS PROPHYLAXIS
     Route: 065
     Dates: start: 20180404, end: 20180502
  2. ATORVASTATIN [Concomitant]
     Active Substance: ATORVASTATIN
     Indication: PRODUCT USED FOR UNKNOWN INDICATION
     Route: 065
     Dates: start: 20180421
  3. TICAGRELOR. [Suspect]
     Active Substance: TICAGRELOR
     Indication: THROMBOSIS PROPHYLAXIS
     Route: 065
     Dates: start: 20180421, end: 20180426
  4. AMLODIPINE W/OLMESARTAN [Concomitant]
     Active Substance: AMLODIPINE MALEATE\OLMESARTAN MEDOXOMIL
     Indication: PRODUCT USED FOR UNKNOWN INDICATION
     Dosage: STRENGTH-20/5 MG
     Route: 065
  5. OLMESARTAN [Concomitant]
     Active Substance: OLMESARTAN
     Indication: PRODUCT USED FOR UNKNOWN INDICATION
     Route: 065
  6. HEPARIN [Concomitant]
     Active Substance: HEPARIN SODIUM
     Indication: PRODUCT USED FOR UNKNOWN INDICATION
     Route: 065
  7. SERTRALINE [Concomitant]
     Active Substance: SERTRALINE HYDROCHLORIDE
     Indication: PRODUCT USED FOR UNKNOWN INDICATION
     Route: 065
  8. CLOPIDOGREL [Concomitant]
     Active Substance: CLOPIDOGREL BISULFATE
     Indication: PRODUCT USED FOR UNKNOWN INDICATION
     Route: 065
  9. ACID ACETYLSALICYLIC [Suspect]
     Active Substance: ASPIRIN
     Route: 065
  10. ATORVASTATIN [Concomitant]
     Active Substance: ATORVASTATIN
     Route: 065
  11. PRADAXA [Suspect]
     Active Substance: DABIGATRAN ETEXILATE MESYLATE
     Indication: ATRIAL FIBRILLATION
     Route: 065
     Dates: end: 20180426
  12. PRADAXA [Suspect]
     Active Substance: DABIGATRAN ETEXILATE MESYLATE
     Route: 065
     Dates: start: 20180504
  13. LANSOPRAZOLE. [Concomitant]
     Active Substance: LANSOPRAZOLE
     Indication: PRODUCT USED FOR UNKNOWN INDICATION
     Route: 065
  14. OLMESARTAN [Concomitant]
     Active Substance: OLMESARTAN
     Route: 065

REACTIONS (4)
  - Haemorrhage [Recovered/Resolved]
  - Dysplasia [Unknown]
  - Urinary bladder haemorrhage [Recovered/Resolved]
  - Adenoma benign [Unknown]

NARRATIVE: CASE EVENT DATE: 20180426
